FAERS Safety Report 20461182 (Version 3)
Quarter: 2022Q1

REPORT INFORMATION
  Report Type: Report from Study
  Country: ES (occurrence: None)
  Receive Date: 20220211
  Receipt Date: 20220221
  Transmission Date: 20220423
  Serious: Yes (Death, Hospitalization)
  Sender: FDA-Public Use
  Company Number: ES-ROCHE-2992284

PATIENT
  Age: 68 Year
  Sex: Male
  Weight: 102.9 kg

DRUGS (26)
  1. GLOFITAMAB [Suspect]
     Active Substance: GLOFITAMAB
     Indication: B-cell lymphoma
     Dosage: TOTAL VOLUME PRIOR TO AE/SAE 100 ML?LAST STUDY DRUG ADMIN PRIOR TO AE/SAE 30 MG?MOST RECENT DOSE OF
     Route: 042
     Dates: start: 20211119
  2. TOCILIZUMAB [Suspect]
     Active Substance: TOCILIZUMAB
     Indication: B-cell lymphoma
     Dosage: START AND END DATE OF MOST RECENT DOSE OF STUDY DRUG PRIOR TO AE AND SAE 03/DEC/2021 AT 700 MG
     Route: 041
     Dates: start: 20211203
  3. RITUXIMAB [Suspect]
     Active Substance: RITUXIMAB
     Indication: B-cell lymphoma
     Dosage: LAST DOSE OF RITUXIMAB WAS ADMIN ON 825 MG/M2 PRIOR TO AE/SAE?TOTAL VOLUME PRIOR TO AE/SAE 332.5 ML
     Route: 042
     Dates: start: 20211022
  4. CYCLOPHOSPHAMIDE [Suspect]
     Active Substance: CYCLOPHOSPHAMIDE
     Indication: B-cell lymphoma
     Dosage: LAST DOSE OF CYCLOPHOSPHAMIDE WAS 750 MG/M2 PRIOR TO AE/SAE?TOTAL VOLUME 1649.25 MG PRIOR TO AE/SAE
     Route: 042
     Dates: start: 20211022
  5. DOXORUBICIN [Suspect]
     Active Substance: DOXORUBICIN
     Indication: B-cell lymphoma
     Dosage: DOSE LAST STUDY DRUG ADMIN PRIOR AE/SAE 50 MG/M2?TOTAL VOLUME PRIOR AE/SAE 109.95 ML?MOST RECENT DOS
     Route: 042
     Dates: start: 20211022
  6. VINCRISTINE [Suspect]
     Active Substance: VINCRISTINE
     Indication: B-cell lymphoma
     Dosage: DOSE LAST STUDY DRUG ADMIN PRIOR AE/SAE 1.4 MG/M2?TOTAL VOLUME PRIOR AE/SAE 2 ML?MOST RECENT DOSE WA
     Route: 042
     Dates: start: 20211022
  7. PREDNISONE [Suspect]
     Active Substance: PREDNISONE
     Indication: B-cell lymphoma
     Dosage: DOSE LAST STUDY DRUG ADMIN PRIOR AESAE 100 MG?DATE OF MOST RECENT DOSE PRIOR TO AE/SAE:14/DEC/2021
     Route: 048
     Dates: start: 20211023
  8. METHYLPREDNISOLONE [Suspect]
     Active Substance: METHYLPREDNISOLONE
     Indication: B-cell lymphoma
     Dosage: DOSE LAST STUDY DRUG ADMIN PRIOR AE/SAE 80 MG?MOST RECENT DOSE WAS ADMIN ON 10/DEC/2021 AT 09:54 AM
     Route: 048
     Dates: start: 20211022
  9. ACETAMINOPHEN [Concomitant]
     Active Substance: ACETAMINOPHEN
     Indication: Cytokine release syndrome
     Route: 048
     Dates: start: 20211203, end: 20211203
  10. ACETAMINOPHEN [Concomitant]
     Active Substance: ACETAMINOPHEN
     Route: 048
     Dates: start: 20211210, end: 20211210
  11. ACETAMINOPHEN [Concomitant]
     Active Substance: ACETAMINOPHEN
     Route: 048
     Dates: start: 20211217, end: 20211217
  12. AMOXICILLIN\CLAVULANATE POTASSIUM [Concomitant]
     Active Substance: AMOXICILLIN\CLAVULANATE POTASSIUM
     Indication: Cytokine release syndrome
     Dates: start: 20211203
  13. ONDANSETRON [Concomitant]
     Active Substance: ONDANSETRON
     Route: 042
     Dates: start: 20211210, end: 20211210
  14. DEXAMETHASONE [Concomitant]
     Active Substance: DEXAMETHASONE
     Indication: Premedication
     Route: 042
     Dates: start: 20211203, end: 20211203
  15. DEXAMETHASONE [Concomitant]
     Active Substance: DEXAMETHASONE
     Route: 042
     Dates: start: 20211217, end: 20211217
  16. DEXCHLORPHENIRAMINE [Concomitant]
     Active Substance: DEXCHLORPHENIRAMINE
     Route: 042
     Dates: start: 20211210, end: 20211210
  17. DEXCHLORPHENIRAMINE [Concomitant]
     Active Substance: DEXCHLORPHENIRAMINE
     Route: 042
     Dates: start: 20211203, end: 20211203
  18. DEXCHLORPHENIRAMINE [Concomitant]
     Active Substance: DEXCHLORPHENIRAMINE
     Route: 042
     Dates: start: 20211217, end: 20211217
  19. ASPIRIN [Concomitant]
     Active Substance: ASPIRIN
     Indication: Pain prophylaxis
  20. VALSARTAN [Concomitant]
     Active Substance: VALSARTAN
  21. ALLOPURINOL [Concomitant]
     Active Substance: ALLOPURINOL
  22. TENOFOVIR [Concomitant]
     Active Substance: TENOFOVIR
     Dates: start: 20211019
  23. ACYCLOVIR [Concomitant]
     Active Substance: ACYCLOVIR
     Dates: start: 20211019
  24. TRIMETHOPRIM [Concomitant]
     Active Substance: TRIMETHOPRIM
     Dates: start: 20211019
  25. SULFAMETHOXAZOLE [Concomitant]
     Active Substance: SULFAMETHOXAZOLE
     Dates: start: 20211019
  26. OXYGEN [Concomitant]
     Active Substance: OXYGEN
     Indication: Cytokine release syndrome
     Dosage: LOW FLOW OXYGEN
     Dates: start: 20211203, end: 20211204

REACTIONS (2)
  - COVID-19 pneumonia [Fatal]
  - COVID-19 [Recovered/Resolved]

NARRATIVE: CASE EVENT DATE: 20211225
